FAERS Safety Report 23505177 (Version 3)
Quarter: 2024Q2

REPORT INFORMATION
  Report Type: Report from Study
  Country: US (occurrence: US)
  Receive Date: 20240209
  Receipt Date: 20240405
  Transmission Date: 20240715
  Serious: Yes (Other)
  Sender: FDA-Public Use
  Company Number: US-JNJFOC-20240201571

PATIENT
  Age: 50 Year
  Sex: Female

DRUGS (11)
  1. SPRAVATO [Interacting]
     Active Substance: ESKETAMINE
     Indication: Depression
     Dosage: ^56 MG, 13 TOTAL DOSES^
     Dates: start: 20191118, end: 20200415
  2. SPRAVATO [Interacting]
     Active Substance: ESKETAMINE
     Indication: Major depression
     Dosage: ^84 MG, 25 TOTAL DOSES^
     Dates: start: 20200422, end: 20220105
  3. SPRAVATO [Interacting]
     Active Substance: ESKETAMINE
     Dosage: ^56 MG, 5 TOTAL DOSES^
     Dates: start: 20240111, end: 20240125
  4. SPRAVATO [Interacting]
     Active Substance: ESKETAMINE
     Dosage: ^56 MG, RECENT ADMINISTERED DOSE^
     Dates: start: 20240130, end: 20240130
  5. PERCOCET [Interacting]
     Active Substance: ACETAMINOPHEN\OXYCODONE HYDROCHLORIDE
     Indication: Tooth abscess
     Route: 065
  6. CLONAZEPAM [Concomitant]
     Active Substance: CLONAZEPAM
     Indication: Anxiety
     Route: 048
  7. CLONIDINE [Concomitant]
     Active Substance: CLONIDINE
     Route: 048
  8. LAMOTRIGINE [Concomitant]
     Active Substance: LAMOTRIGINE
     Route: 048
  9. SYNTHROID [Concomitant]
     Active Substance: LEVOTHYROXINE SODIUM
     Route: 048
  10. LISINOPRIL [Concomitant]
     Active Substance: LISINOPRIL
     Route: 048
  11. TRAZODONE [Concomitant]
     Active Substance: TRAZODONE HYDROCHLORIDE
     Route: 048

REACTIONS (8)
  - Oxygen saturation decreased [Recovered/Resolved]
  - Substance abuse [Unknown]
  - Drug interaction [Unknown]
  - Tremor [Unknown]
  - Agitation [Unknown]
  - Akathisia [Unknown]
  - Sedation [Recovered/Resolved]
  - Dissociation [Recovered/Resolved]

NARRATIVE: CASE EVENT DATE: 20240101
